FAERS Safety Report 19090025 (Version 1)
Quarter: 2021Q2

REPORT INFORMATION
  Report Type: Spontaneous
  Country: US (occurrence: US)
  Receive Date: 20210404
  Receipt Date: 20210404
  Transmission Date: 20210717
  Serious: No
  Sender: FDA-Public Use
  Company Number: US-TEVA-2021-US-1895256

PATIENT
  Age: 44 Year
  Sex: Male

DRUGS (1)
  1. BUPROPION HYDROCHLORIDE SR 150 MG [Suspect]
     Active Substance: BUPROPION HYDROCHLORIDE
     Route: 065

REACTIONS (1)
  - Drug ineffective [Unknown]
